FAERS Safety Report 24445240 (Version 2)
Quarter: 2024Q4

REPORT INFORMATION
  Report Type: Report from Study
  Country: US (occurrence: US)
  Receive Date: 20241016
  Receipt Date: 20241018
  Transmission Date: 20250115
  Serious: Yes (Other)
  Sender: ABBVIE
  Company Number: US-ABBVIE-5960097

PATIENT
  Sex: Female

DRUGS (1)
  1. UBRELVY [Suspect]
     Active Substance: UBROGEPANT
     Indication: Psoriasis
     Route: 048

REACTIONS (4)
  - Surgery [Unknown]
  - Asthenia [Unknown]
  - Muscular weakness [Unknown]
  - Post procedural complication [Unknown]
